FAERS Safety Report 15941038 (Version 1)
Quarter: 2019Q1

REPORT INFORMATION
  Report Type: Spontaneous
  Country: DE (occurrence: DE)
  Receive Date: 20190208
  Receipt Date: 20190208
  Transmission Date: 20190417
  Serious: Yes (Life-Threatening, Hospitalization)
  Sender: FDA-Public Use
  Company Number: DE-ALLERGAN-1905225US

PATIENT
  Age: 32 Year
  Sex: Female
  Weight: 75 kg

DRUGS (11)
  1. FORTECORTIN [Suspect]
     Active Substance: DEXAMETHASONE
     Indication: BRAIN OEDEMA
     Dosage: 6 MG, BID
     Route: 048
  2. OPHTALMIN [Concomitant]
     Route: 031
  3. TRILEPTAL [Suspect]
     Active Substance: OXCARBAZEPINE
     Indication: SEIZURE
     Dosage: 1200 MG, BID
     Route: 048
  4. TRILEPTAL [Suspect]
     Active Substance: OXCARBAZEPINE
     Dosage: 1050 MG/D (1-1-1.5)
     Route: 048
  5. CORSODYL [Concomitant]
     Active Substance: CHLORHEXIDINE GLUCONATE
     Indication: CANDIDA INFECTION
     Dosage: 2X/D
     Route: 048
  6. CANDIO-HERMAL [Concomitant]
     Active Substance: NYSTATIN
     Indication: CANDIDA INFECTION
     Dosage: 5X/D
     Route: 048
  7. FLUOROMETHOLONE UNK [Suspect]
     Active Substance: FLUOROMETHOLONE
     Indication: PRODUCT USED FOR UNKNOWN INDICATION
     Dosage: UNK, PRN
     Route: 031
  8. AUGENTROPFEN [BORIC ACID\PILOCARPINE\THIAMINE] [Suspect]
     Active Substance: BORIC ACID\PILOCARPINE\THIAMINE
     Indication: PRODUCT USED FOR UNKNOWN INDICATION
     Route: 031
  9. FLOXAL [Suspect]
     Active Substance: OFLOXACIN
     Indication: CONJUNCTIVITIS
     Dosage: UNK, PRN
     Dates: start: 20010303, end: 20010308
  10. PANTOZOL [Suspect]
     Active Substance: PANTOPRAZOLE SODIUM
     Indication: PROPHYLAXIS AGAINST GASTROINTESTINAL ULCER
     Dosage: 1 DF, QD
     Route: 048
  11. TETRYZOLINE [Suspect]
     Active Substance: TETRAHYDROZOLINE
     Indication: CONJUNCTIVITIS
     Dosage: UNK, PRN
     Route: 047
     Dates: start: 20010310, end: 20010317

REACTIONS (10)
  - Leukocytosis [Unknown]
  - Pruritus [Recovered/Resolved]
  - Dermatitis bullous [Recovered/Resolved]
  - Rash macular [Recovered/Resolved]
  - Toxic epidermal necrolysis [Recovered/Resolved]
  - Enanthema [Recovered/Resolved]
  - Oral discomfort [Recovered/Resolved]
  - Ocular hyperaemia [Recovered/Resolved]
  - Mucosal erosion [Recovered/Resolved]
  - Stevens-Johnson syndrome [Recovered/Resolved]

NARRATIVE: CASE EVENT DATE: 20010324
